FAERS Safety Report 4751289-0 (Version None)
Quarter: 2005Q3

REPORT INFORMATION
  Report Type: 
  Country: None (occurrence: None)
  Receive Date: 20050824
  Receipt Date: 20050805
  Transmission Date: 20060218
  Serious: Yes (Hospitalization)
  Sender: FDA-Public Use
  Company Number: 2005PK01477

PATIENT
  Age: 24614 Day
  Sex: Female

DRUGS (10)
  1. SEROQUEL [Suspect]
     Indication: ABNORMAL BEHAVIOUR
     Route: 048
     Dates: end: 20050725
  2. SEROQUEL [Suspect]
     Indication: DEMENTIA
     Route: 048
     Dates: end: 20050725
  3. SEROQUEL [Suspect]
     Route: 048
     Dates: start: 20050726
  4. SEROQUEL [Suspect]
     Route: 048
     Dates: start: 20050726
  5. EUNERPAN [Concomitant]
     Indication: ABNORMAL BEHAVIOUR
     Route: 048
  6. EUNERPAN [Concomitant]
     Indication: DEMENTIA
     Route: 048
  7. SAB SIMPLEX [Concomitant]
     Indication: FLATULENCE
     Route: 048
  8. CALCIVIT D [Concomitant]
     Route: 048
  9. DOXYCYCLINE HCL [Concomitant]
     Indication: PYREXIA
     Route: 048
     Dates: start: 20050725
  10. GALIKLY [Concomitant]
     Indication: CONSTIPATION

REACTIONS (1)
  - SUBILEUS [None]
